FAERS Safety Report 12373142 (Version 1)
Quarter: 2016Q2

REPORT INFORMATION
  Report Type: Report from Study
  Country: US (occurrence: US)
  Receive Date: 20160516
  Receipt Date: 20160516
  Transmission Date: 20160815
  Serious: Yes (Other)
  Sender: FDA-Public Use
  Company Number: US-MALLINCKRODT-T201600621

PATIENT
  Age: 55 Year
  Sex: Male
  Weight: 128 kg

DRUGS (14)
  1. OMEPRAZOLE. [Concomitant]
     Active Substance: OMEPRAZOLE
     Dosage: 20MG BID
  2. MAGNESIUM [Concomitant]
     Active Substance: MAGNESIUM
     Dosage: 500MG QD
  3. LOSARTAN. [Concomitant]
     Active Substance: LOSARTAN
     Dosage: 100MG QD
  4. HYDROCHLOROTHIAZIDE. [Concomitant]
     Active Substance: HYDROCHLOROTHIAZIDE
     Dosage: 25MG QD
  5. NABUMETONE. [Concomitant]
     Active Substance: NABUMETONE
     Dosage: 750MG BID
  6. FENOFIBRATE. [Concomitant]
     Active Substance: FENOFIBRATE
     Dosage: 200MG QD
  7. HYDROCODONE [Concomitant]
     Active Substance: HYDROCODONE
     Indication: BREAKTHROUGH PAIN
     Dosage: 10/235 PRN
  8. BISOPROLOL [Concomitant]
     Active Substance: BISOPROLOL
     Dosage: 5MG, 1/2 TAB
  9. CLONAZEPAM. [Concomitant]
     Active Substance: CLONAZEPAM
     Dosage: 1MG, 1/2 TAB PRN
  10. REPOSITORY CORTICOTROPIN INJECTION [Suspect]
     Active Substance: CORTICOTROPIN
     Indication: SARCOIDOSIS
     Dosage: 80U EVERY OTHER DAY
     Route: 058
     Dates: start: 20160212, end: 20160423
  11. CYMBALTA [Concomitant]
     Active Substance: DULOXETINE HYDROCHLORIDE
     Dosage: 60MG BID
  12. FENTANYL. [Concomitant]
     Active Substance: FENTANYL
     Dosage: 75MCG/HR PATCH
  13. THEOPHYLLINE [Concomitant]
     Active Substance: THEOPHYLLINE ANHYDROUS
     Dosage: 300MG BID
  14. BABY ASPIRIN [Concomitant]
     Active Substance: ASPIRIN
     Dosage: QD

REACTIONS (7)
  - Fatigue [Unknown]
  - Constipation [Recovered/Resolved]
  - Blood pressure increased [Not Recovered/Not Resolved]
  - Blood glucose increased [Not Recovered/Not Resolved]
  - Diarrhoea [Not Recovered/Not Resolved]
  - Abdominal pain [Not Recovered/Not Resolved]
  - Upper respiratory tract infection [Not Recovered/Not Resolved]

NARRATIVE: CASE EVENT DATE: 20160212
